FAERS Safety Report 7595050-0 (Version None)
Quarter: 2011Q3

REPORT INFORMATION
  Report Type: 
  Country: None (occurrence: None)
  Receive Date: 20110707
  Receipt Date: 20110621
  Transmission Date: 20111222
  Serious: No
  Sender: FDA-Public Use
  Company Number: US-B.I. PHARMACEUTICALS,INC./RIDGEFIELD-2011-BP-14612BP

PATIENT
  Age: 78 Year
  Sex: Female

DRUGS (5)
  1. ZOCOR [Concomitant]
     Indication: BLOOD CHOLESTEROL INCREASED
  2. CANASA [Concomitant]
     Indication: COLITIS
  3. SUPPOSITORIES [Concomitant]
     Indication: COLITIS
     Route: 054
  4. TOPROL-XL [Concomitant]
  5. PRADAXA [Suspect]
     Indication: ATRIAL FIBRILLATION
     Dosage: 300 MG
     Route: 048
     Dates: start: 20110501

REACTIONS (1)
  - BLOOD VISCOSITY INCREASED [None]
